FAERS Safety Report 6201217-6 (Version None)
Quarter: 2009Q2

REPORT INFORMATION
  Report Type: 
  Country: None (occurrence: None)
  Receive Date: 20090526
  Receipt Date: 20090519
  Transmission Date: 20091009
  Serious: Yes (Hospitalization)
  Sender: FDA-Public Use
  Company Number: CH-JNJFOC-20090504416

PATIENT
  Age: 44 Year
  Sex: Male

DRUGS (1)
  1. TOPAMAX [Suspect]
     Indication: DRUG USE FOR UNKNOWN INDICATION
     Dosage: AFTER 1 MONTH
     Route: 048

REACTIONS (2)
  - RENAL FAILURE [None]
  - TREMOR [None]
